FAERS Safety Report 16474044 (Version 1)
Quarter: 2019Q2

REPORT INFORMATION
  Report Type: Spontaneous
  Country: US (occurrence: US)
  Receive Date: 20190515
  Receipt Date: 20190515
  Transmission Date: 20190711
  Serious: Yes (Disabling)
  Sender: FDA-Public Use
  Company Number: None

PATIENT
  Age: 50 Year
  Sex: Female
  Weight: 90.72 kg

DRUGS (1)
  1. LEVOTHYROXINE. [Suspect]
     Active Substance: LEVOTHYROXINE
     Indication: HYPOTHYROIDISM
     Dosage: ?          QUANTITY:200 UG MICROGRAM(S);OTHER FREQUENCY:MORNING;?
     Route: 048
     Dates: start: 201903

REACTIONS (7)
  - Depression [None]
  - Fatigue [None]
  - Stress [None]
  - Weight increased [None]
  - Drug ineffective [None]
  - Skin burning sensation [None]
  - Product substitution issue [None]
